FAERS Safety Report 23940679 (Version 1)
Quarter: 2024Q2

REPORT INFORMATION
  Report Type: Spontaneous
  Country: PT (occurrence: PT)
  Receive Date: 20240605
  Receipt Date: 20240605
  Transmission Date: 20240716
  Serious: Yes (Other)
  Sender: FDA-Public Use
  Company Number: PT-MYLANLABS-2024M1049779

PATIENT
  Age: 34 Year
  Sex: Male

DRUGS (1)
  1. ROPIVACAINE [Suspect]
     Active Substance: ROPIVACAINE
     Indication: Nerve block
     Dosage: 13 MILLILITER
     Route: 065

REACTIONS (3)
  - Paralysis recurrent laryngeal nerve [Recovered/Resolved]
  - Phrenic nerve paralysis [Recovered/Resolved]
  - Dysphonia [Recovered/Resolved]
